FAERS Safety Report 6696695-2 (Version None)
Quarter: 2010Q2

REPORT INFORMATION
  Report Type: 
  Country: None (occurrence: None)
  Receive Date: 20100422
  Receipt Date: 20100413
  Transmission Date: 20101027
  Serious: Yes (Death, Hospitalization)
  Sender: FDA-Public Use
  Company Number: CAP09000281

PATIENT
  Age: 85 Year
  Sex: Male

DRUGS (10)
  1. ACTONEL [Suspect]
     Indication: OSTEOPOROSIS
     Dosage: 150 MG ONCE MONTHLY, ORAL
     Route: 048
     Dates: start: 20090815, end: 20090915
  2. ALLOPURINOL [Concomitant]
  3. RABEPRAZOLE SODIUM [Concomitant]
  4. HYDROCHLOROTHIAZIDE [Concomitant]
  5. ONE-A-DAY /01719501/ (MINERALS NOS, VITAMINS NOS) [Concomitant]
  6. VITAMIN B-12 [Concomitant]
  7. CALCIUM (CALCIUM) [Concomitant]
  8. TIMOPTIC [Concomitant]
  9. TRUSOPT [Concomitant]
  10. CELEXA [Concomitant]

REACTIONS (22)
  - AORTIC VALVE INCOMPETENCE [None]
  - AORTIC VALVE STENOSIS [None]
  - ARTHRALGIA [None]
  - BLOOD ALBUMIN DECREASED [None]
  - BURNING SENSATION [None]
  - DECREASED APPETITE [None]
  - DEEP VEIN THROMBOSIS [None]
  - DIARRHOEA [None]
  - DYSGEUSIA [None]
  - FATIGUE [None]
  - GAIT DISTURBANCE [None]
  - GENERAL PHYSICAL HEALTH DETERIORATION [None]
  - HYPOTENSION [None]
  - JOINT SWELLING [None]
  - LEFT VENTRICULAR DYSFUNCTION [None]
  - OEDEMA PERIPHERAL [None]
  - PREALBUMIN DECREASED [None]
  - PULMONARY EMBOLISM [None]
  - RESPIRATORY DISORDER [None]
  - SCROTAL OEDEMA [None]
  - VENTRICULAR HYPOKINESIA [None]
  - WEIGHT DECREASED [None]
